FAERS Safety Report 16430175 (Version 1)
Quarter: 2019Q2

REPORT INFORMATION
  Report Type: Report from Study
  Country: None (occurrence: US)
  Receive Date: 20190614
  Receipt Date: 20190614
  Transmission Date: 20190711
  Serious: Yes (Death)
  Sender: FDA-Public Use
  Company Number: US-ABBVIE-19S-163-2820415-00

PATIENT
  Sex: Male
  Weight: 72.64 kg

DRUGS (1)
  1. CREON [Suspect]
     Active Substance: PANCRELIPASE AMYLASE\PANCRELIPASE LIPASE\PANCRELIPASE PROTEASE
     Indication: PANCREATIC CARCINOMA
     Dosage: 1 CAPSULE WITH MEALS
     Route: 048
     Dates: start: 20180404, end: 20190527

REACTIONS (2)
  - Fluid retention [Not Recovered/Not Resolved]
  - Cardiac failure congestive [Fatal]
